FAERS Safety Report 7576950-4 (Version None)
Quarter: 2011Q2

REPORT INFORMATION
  Report Type: 
  Country: None (occurrence: None)
  Receive Date: 20110628
  Receipt Date: 20090910
  Transmission Date: 20111010
  Serious: Yes (Death, Hospitalization, Other)
  Sender: FDA-Public Use
  Company Number: US-BAYER-200937853NA

PATIENT
  Age: 88 Year
  Sex: Male
  Weight: 68.481 kg

DRUGS (18)
  1. ACETYLSALICYLIC ACID SRT [Concomitant]
     Dosage: 81 MG, QD, LONG TERM
     Route: 048
  2. FENTANYL [Concomitant]
     Dosage: 60 ML, ONCE
     Route: 042
     Dates: start: 20040312, end: 20040312
  3. SULAR [Concomitant]
     Dosage: 10 MG, QD, LONG TERM
     Route: 048
  4. TRASYLOL [Suspect]
     Dosage: 50ML/HR INFUSION
     Route: 042
     Dates: start: 20040312, end: 20040312
  5. FENOLDOPAM [Concomitant]
     Dosage: 0.05MCG/KG/MIN
     Route: 042
     Dates: start: 20040312, end: 20040312
  6. NIPRIDE [Concomitant]
     Dosage: 0.05MCG/KG/MIN
     Route: 042
     Dates: start: 20040312, end: 20040312
  7. PREVACID [Concomitant]
     Dosage: 30 MG, QD, LONG TERM
     Route: 048
  8. HEPARIN [Concomitant]
     Dosage: 21000 U, ONCE
     Route: 042
     Dates: start: 20040312, end: 20040312
  9. ETOMIDATE [Concomitant]
     Dosage: 30 MG, ONCE
     Route: 042
     Dates: start: 20040312, end: 20040312
  10. ROCURONIUM BROMIDE [Concomitant]
     Dosage: 300 MG, UNK
     Route: 042
     Dates: start: 20040312
  11. LASIX [Concomitant]
     Dosage: 10 MG, UNK
     Route: 042
     Dates: start: 20040312
  12. LIDOCAINE [Concomitant]
  13. ANCEF [Concomitant]
     Dosage: 2GM/1GM ONCE
     Route: 042
     Dates: start: 20040312, end: 20040312
  14. VERSED [Concomitant]
     Dosage: 20 MG, ONCE
     Route: 042
     Dates: start: 20040312, end: 20040312
  15. TRASYLOL [Suspect]
     Indication: AORTIC VALVE REPLACEMENT
     Dosage: 200 ML, ONCE, LOADING DOSE
     Route: 042
     Dates: start: 20040312, end: 20040312
  16. ISOFLURANE [Concomitant]
     Dosage: UNK
     Dates: start: 20040312
  17. PROTAMINE SULFATE [Concomitant]
     Dosage: 350 MG, ONCE
     Route: 042
     Dates: start: 20040312, end: 20040312
  18. RED BLOOD CELLS [Concomitant]
     Dosage: 5 U, ONCE
     Route: 042
     Dates: start: 20040312

REACTIONS (14)
  - CEREBROVASCULAR ACCIDENT [None]
  - ANXIETY [None]
  - INJURY [None]
  - DEATH [None]
  - STRESS [None]
  - PAIN [None]
  - MULTI-ORGAN FAILURE [None]
  - RENAL INJURY [None]
  - FEAR [None]
  - ANHEDONIA [None]
  - UNEVALUABLE EVENT [None]
  - RENAL FAILURE [None]
  - RENAL IMPAIRMENT [None]
  - EMOTIONAL DISTRESS [None]
